FAERS Safety Report 20325578 (Version 1)
Quarter: 2022Q1

REPORT INFORMATION
  Report Type: Report from Study
  Country: US (occurrence: US)
  Receive Date: 20220112
  Receipt Date: 20220112
  Transmission Date: 20220423
  Serious: No
  Sender: FDA-Public Use
  Company Number: US-SERVIER-S22000047

PATIENT

DRUGS (12)
  1. TIBSOVO [Suspect]
     Active Substance: IVOSIDENIB
     Indication: Cholangiocarcinoma
     Dosage: 500 MG, DAILY
     Route: 048
     Dates: start: 20200925
  2. TN UNSPECIFIED [Concomitant]
     Indication: Product used for unknown indication
     Dosage: 1500 MG, BID
     Route: 065
  3. TN UNSPECIFIED [Concomitant]
     Indication: Product used for unknown indication
     Dosage: 2.5 MG, QD
     Route: 065
  4. TN UNSPECIFIED [Concomitant]
     Indication: Product used for unknown indication
     Dosage: 2000 IU, QD
     Route: 065
  5. TN UNSPECIFIED [Concomitant]
     Indication: Product used for unknown indication
     Dosage: 160 MG, QD
     Route: 065
  6. TN UNSPECIFIED [Concomitant]
     Indication: Product used for unknown indication
     Dosage: 300 MG, TID
     Route: 065
  7. TN UNSPECIFIED [Concomitant]
     Indication: Product used for unknown indication
     Dosage: 25 MG, AS DIRECTED
     Route: 065
  8. IMITREX [Concomitant]
     Active Substance: SUMATRIPTAN SUCCINATE
     Indication: Product used for unknown indication
     Dosage: UNK
     Route: 065
  9. TN UNSPECIFIED [Concomitant]
     Indication: Product used for unknown indication
     Dosage: 100 MG, QD
     Route: 065
  10. TN UNSPECIFIED [Concomitant]
     Indication: Product used for unknown indication
     Dosage: 500 MG, BID
     Route: 065
  11. TN UNSPECIFIED [Concomitant]
     Indication: Product used for unknown indication
     Dosage: 2.5 MEQ, UNK
     Route: 065
  12. TN UNSPECIFIED [Concomitant]
     Indication: Product used for unknown indication
     Dosage: 1000 MG, BID
     Route: 065

REACTIONS (1)
  - Product dose omission in error [Recovered/Resolved]

NARRATIVE: CASE EVENT DATE: 20211230
